FAERS Safety Report 24562822 (Version 1)
Quarter: 2024Q4

REPORT INFORMATION
  Report Type: Report from Study
  Country: IE (occurrence: IE)
  Receive Date: 20241029
  Receipt Date: 20241029
  Transmission Date: 20250115
  Serious: Yes (Other)
  Sender: JOHNSON AND JOHNSON
  Company Number: IE-JNJFOC-20240854197

PATIENT
  Age: 57 Year
  Sex: Male

DRUGS (4)
  1. ZYTIGA [Suspect]
     Active Substance: ABIRATERONE ACETATE
     Indication: Prostate cancer
     Route: 048
     Dates: start: 20210412
  2. PREDNISOLONE [Concomitant]
     Active Substance: PREDNISOLONE
  3. IBUPROFEN [Concomitant]
     Active Substance: IBUPROFEN
  4. ACETAMINOPHEN [Concomitant]
     Active Substance: ACETAMINOPHEN

REACTIONS (4)
  - Pneumonia [Recovering/Resolving]
  - Influenza [Recovering/Resolving]
  - Lower respiratory tract infection [Recovering/Resolving]
  - Weight decreased [Recovered/Resolved]

NARRATIVE: CASE EVENT DATE: 20240810
